FAERS Safety Report 13182796 (Version 2)
Quarter: 2017Q1

REPORT INFORMATION
  Report Type: Spontaneous
  Country: JP (occurrence: JP)
  Receive Date: 20170203
  Receipt Date: 20170302
  Transmission Date: 20170428
  Serious: Yes (Other)
  Sender: FDA-Public Use
  Company Number: PHJP2017JP003730

PATIENT
  Age: 67 Year
  Sex: Female

DRUGS (1)
  1. STALEVO [Suspect]
     Active Substance: CARBIDOPA\ENTACAPONE\LEVODOPA
     Indication: PARKINSON^S DISEASE
     Dosage: 4 DF (CARBIDOPA 10, ENTACAPONE 100, LEVODOPA 100) (400 MG), QD
     Route: 048
     Dates: start: 201608

REACTIONS (2)
  - Parkinson^s disease [Unknown]
  - Tremor [Recovering/Resolving]
